FAERS Safety Report 8211736-9 (Version None)
Quarter: 2012Q1

REPORT INFORMATION
  Report Type: 
  Country: None (occurrence: None)
  Receive Date: 20120315
  Receipt Date: 20120307
  Transmission Date: 20120608
  Serious: Yes (Hospitalization)
  Sender: FDA-Public Use
  Company Number: US-JNJFOC-20110206312

PATIENT
  Sex: Male
  Weight: 92 kg

DRUGS (18)
  1. LEUPROLIDE ACETATE [Concomitant]
     Dosage: 22.5 UNSPECIFIED UNITS
     Route: 030
     Dates: start: 20100111
  2. VITAMIN D [Concomitant]
     Indication: VITAMIN SUPPLEMENTATION
     Route: 048
     Dates: start: 20090201, end: 20110630
  3. VITAMIN D [Concomitant]
     Route: 048
     Dates: start: 20090101
  4. ABIRATERONE ACETATE [Suspect]
     Indication: PROSTATE CANCER METASTATIC
     Route: 048
     Dates: start: 20100111
  5. LEUPROLIDE ACETATE [Concomitant]
     Indication: HORMONE THERAPY
     Route: 030
     Dates: start: 19970801
  6. VITAMIN D [Concomitant]
     Route: 048
     Dates: start: 20090201, end: 20110630
  7. VICODIN [Concomitant]
     Indication: NECK PAIN
     Dosage: EVERY 4-6 HOURS
     Route: 048
     Dates: start: 20110108
  8. NAPROXEN (ALEVE) [Concomitant]
     Indication: ARTHRALGIA
     Route: 048
     Dates: start: 20100330
  9. LEVAQUIN [Concomitant]
     Indication: URINARY TRACT INFECTION
     Route: 048
     Dates: start: 20110119, end: 20110126
  10. PREDNISONE TAB [Suspect]
     Indication: PROSTATE CANCER METASTATIC
     Route: 048
     Dates: start: 20100111
  11. LEVOTHYROXINE SODIUM [Concomitant]
     Indication: HYPOTHYROIDISM
     Route: 048
     Dates: start: 20030101
  12. SULFAMETHOXAZOLE AND TRIMETHOPRIM [Concomitant]
     Indication: URINARY TRACT INFECTION
     Route: 048
     Dates: start: 20101114
  13. ABIRATERONE ACETATE [Suspect]
     Route: 048
  14. FLEXERIL [Concomitant]
     Indication: NECK PAIN
     Route: 048
     Dates: start: 20110108
  15. MULTI-VITAMINS [Concomitant]
     Indication: PRODUCT USED FOR UNKNOWN INDICATION
     Route: 065
  16. CRESTOR [Concomitant]
     Indication: HYPERCHOLESTEROLAEMIA
     Route: 048
     Dates: start: 20060101
  17. TYLENOL [Concomitant]
     Indication: MUSCULOSKELETAL PAIN
     Route: 048
     Dates: start: 20040101
  18. VITAMIN D [Concomitant]
     Indication: ROUTINE HEALTH MAINTENANCE
     Route: 048
     Dates: start: 20090101

REACTIONS (4)
  - PULMONARY HYPERTENSION [None]
  - PULMONARY EMBOLISM [None]
  - AORTIC STENOSIS [None]
  - DYSPNOEA [None]
